FAERS Safety Report 6880337-7 (Version None)
Quarter: 2010Q3

REPORT INFORMATION
  Report Type: 
  Country: None (occurrence: None)
  Receive Date: 20100728
  Receipt Date: 20100716
  Transmission Date: 20110219
  Serious: Yes (Hospitalization)
  Sender: FDA-Public Use
  Company Number: KR-PFIZER INC-2010011934

PATIENT
  Age: 72 Year
  Sex: Male
  Weight: 62 kg

DRUGS (12)
  1. BLINDED *NO SUBJECT DRUG [Suspect]
     Indication: CARDIAC FAILURE CONGESTIVE
     Dosage: UNK
     Route: 048
     Dates: start: 20081202, end: 20100125
  2. BLINDED *PLACEBO [Suspect]
     Indication: CARDIAC FAILURE CONGESTIVE
     Dosage: UNK
     Route: 048
     Dates: start: 20081202, end: 20100125
  3. BLINDED EPLERENONE [Suspect]
     Indication: CARDIAC FAILURE CONGESTIVE
     Dosage: UNK
     Route: 048
     Dates: start: 20081202, end: 20100125
  4. WARFARIN [Concomitant]
     Dosage: 1 MG, TWICE PER WEEK
     Route: 048
     Dates: start: 20100113
  5. WARFARIN [Concomitant]
     Dosage: 1 MG, 5 TIMES PER WEEK
     Route: 048
     Dates: start: 20100113
  6. DILATREND [Concomitant]
     Dosage: 25 MG, UNK
     Route: 048
     Dates: start: 20060703
  7. DIGOSIN [Concomitant]
     Dosage: 0.25 MG, UNK
     Route: 048
     Dates: start: 20060419
  8. ATACAND [Concomitant]
     Dosage: 8 MG, UNK
     Route: 048
     Dates: start: 20060419
  9. LASIX [Concomitant]
     Dosage: 40 MG, UNK
     Route: 048
     Dates: start: 20060420
  10. AMARYL [Concomitant]
     Dosage: 4 MG, UNK
     Route: 048
     Dates: start: 20060419
  11. BASEN [Concomitant]
     Dosage: 0.6 MG, UNK
     Route: 048
     Dates: start: 20060419
  12. TOREM [Concomitant]
     Dosage: 10 MG, UNK
     Route: 048
     Dates: start: 20090303, end: 20100125

REACTIONS (5)
  - BRADYCARDIA [None]
  - CHEST PAIN [None]
  - DYSPNOEA [None]
  - HYPERKALAEMIA [None]
  - RENAL IMPAIRMENT [None]
